FAERS Safety Report 6750439-4 (Version None)
Quarter: 2010Q2

REPORT INFORMATION
  Report Type: 
  Country: None (occurrence: None)
  Receive Date: 20100601
  Receipt Date: 20100527
  Transmission Date: 20101027
  Serious: Yes (Hospitalization)
  Sender: FDA-Public Use
  Company Number: FR-ABBOTT-10P-056-0647722-00

PATIENT
  Sex: Female

DRUGS (2)
  1. MONOZECLAR [Suspect]
     Indication: LUNG INFECTION
  2. ISOPTIN [Interacting]
     Indication: DRUG USE FOR UNKNOWN INDICATION

REACTIONS (3)
  - BRADYCARDIA [None]
  - DRUG INTERACTION [None]
  - MALAISE [None]
